FAERS Safety Report 6156627-2 (Version None)
Quarter: 2009Q2

REPORT INFORMATION
  Report Type: 
  Country: None (occurrence: None)
  Receive Date: 20090416
  Receipt Date: 20090408
  Transmission Date: 20091009
  Serious: Yes (Other)
  Sender: FDA-Public Use
  Company Number: US-ROCHE-626577

PATIENT
  Sex: Male
  Weight: 77.1 kg

DRUGS (3)
  1. CAPECITABINE [Suspect]
     Dosage: FORM: PILLS
     Route: 048
     Dates: start: 20090318, end: 20090403
  2. MORPHINE [Concomitant]
     Indication: PAIN
  3. CARDIZEM [Concomitant]

REACTIONS (2)
  - NEOPLASM MALIGNANT [None]
  - STOMATITIS [None]
